FAERS Safety Report 7438469-0 (Version None)
Quarter: 2011Q2

REPORT INFORMATION
  Report Type: 
  Country: None (occurrence: None)
  Receive Date: 20110426
  Receipt Date: 20110411
  Transmission Date: 20111010
  Serious: Yes (Death)
  Sender: FDA-Public Use
  Company Number: GB-BAUSCH-2011BL002433

PATIENT
  Age: 35 Year
  Sex: Male

DRUGS (8)
  1. PREDNISOLONE [Suspect]
     Indication: ASTHMA
     Route: 048
  2. ALBUTEROL SULFATE AUTOHALER [Concomitant]
  3. PREDNISOLONE [Suspect]
     Route: 048
  4. FLUTICASONE PROPIONATE [Suspect]
     Indication: ASTHMA
  5. OPIOIDS [Concomitant]
     Indication: BACK PAIN
  6. SALMETEROL [Concomitant]
  7. OMALIZUMAB [Concomitant]
     Dates: start: 20080101
  8. THEOPHYLLINE [Concomitant]

REACTIONS (5)
  - CUSHINGOID [None]
  - SPINAL CORD COMPRESSION [None]
  - DRUG DEPENDENCE [None]
  - WEIGHT INCREASED [None]
  - EPIDURAL LIPOMATOSIS [None]
